FAERS Safety Report 9801603 (Version 2)
Quarter: 2014Q1

REPORT INFORMATION
  Report Type: Report from Study
  Country: DE (occurrence: TR)
  Receive Date: 20140107
  Receipt Date: 20140116
  Transmission Date: 20141002
  Serious: Yes (Death)
  Sender: FDA-Public Use
  Company Number: DE-ACTELION-A-NJ2013-93275

PATIENT
  Age: 64 Year
  Sex: Female
  Weight: 70 kg

DRUGS (1)
  1. VENTAVIS [Suspect]
     Indication: PULMONARY HYPERTENSION
     Dosage: UNK, 6X1
     Route: 055
     Dates: start: 20130411, end: 20131125

REACTIONS (3)
  - Pulmonary hypertension [Fatal]
  - Drug ineffective [Unknown]
  - Nausea [Unknown]
